FAERS Safety Report 24130885 (Version 1)
Quarter: 2024Q3

REPORT INFORMATION
  Report Type: Report from Study
  Country: JP (occurrence: JP)
  Receive Date: 20240724
  Receipt Date: 20240724
  Transmission Date: 20241016
  Serious: Yes (Death, Other)
  Sender: ROCHE
  Company Number: JP-CHUGAI-2024024731AA

PATIENT
  Age: 69 Year
  Sex: Male

DRUGS (1)
  1. TECENTRIQ [Suspect]
     Active Substance: ATEZOLIZUMAB
     Indication: Neuroendocrine tumour of the lung
     Route: 042
     Dates: start: 20240412, end: 20240625

REACTIONS (10)
  - Pseudomonas infection [Fatal]
  - Cytokine release syndrome [Fatal]
  - Cardiac failure [Unknown]
  - Renal failure [Unknown]
  - Cough [Unknown]
  - Neutrophil count decreased [Unknown]
  - Pyrexia [Unknown]
  - Pneumonia [Unknown]
  - Acidosis [Unknown]
  - Depressed level of consciousness [Unknown]

NARRATIVE: CASE EVENT DATE: 20240710
